FAERS Safety Report 7302342-9 (Version None)
Quarter: 2011Q1

REPORT INFORMATION
  Report Type: 
  Country: None (occurrence: None)
  Receive Date: 20110218
  Receipt Date: 20110215
  Transmission Date: 20110831
  Serious: Yes (Death)
  Sender: FDA-Public Use
  Company Number: US-PFIZER INC-2010140836

PATIENT
  Sex: Male

DRUGS (4)
  1. ZOLOFT [Suspect]
     Indication: DEPRESSION
     Dosage: 50 MG, 1X/DAY
     Route: 048
     Dates: start: 19900101
  2. TRAZODONE [Concomitant]
     Dosage: 50 MG, AT BEDTIME
  3. DEPAKOTE [Concomitant]
     Indication: BIPOLAR II DISORDER
     Dosage: 250 MG, 2X/DAY
     Dates: start: 20101104
  4. CYTOMEL [Concomitant]
     Indication: BIPOLAR II DISORDER
     Dosage: 50 UG, 1X/DAY
     Dates: start: 20100107

REACTIONS (1)
  - COMPLETED SUICIDE [None]
